FAERS Safety Report 7867124-8 (Version None)
Quarter: 2011Q4

REPORT INFORMATION
  Report Type: 
  Country: None (occurrence: None)
  Receive Date: 20111028
  Receipt Date: 20111019
  Transmission Date: 20120403
  Serious: Yes (Other)
  Sender: FDA-Public Use
  Company Number: CL-BRISTOL-MYERS SQUIBB COMPANY-15145782

PATIENT
  Age: 67 Year
  Sex: Male
  Weight: 49 kg

DRUGS (3)
  1. CISPLATIN [Suspect]
     Indication: GASTROOESOPHAGEAL CANCER
     Dosage: DAY 1 OF CYCLE
     Route: 042
     Dates: start: 20100426, end: 20100426
  2. CETUXIMAB [Suspect]
     Indication: GASTROOESOPHAGEAL CANCER
     Dosage: MOST RECENT INFUSION ON 01JUN2010.NO:4.
     Route: 042
     Dates: start: 20100426
  3. XELODA [Suspect]
     Indication: GASTROOESOPHAGEAL CANCER
     Dosage: ON DAY OF 1-15. LAST INF: 24AUG2010
     Route: 048
     Dates: start: 20100426, end: 20100510

REACTIONS (1)
  - DEEP VEIN THROMBOSIS [None]
